FAERS Safety Report 5424016-1 (Version None)
Quarter: 2007Q3

REPORT INFORMATION
  Report Type: 
  Country: None (occurrence: None)
  Receive Date: 20070727
  Receipt Date: 20061005
  Transmission Date: 20080115
  Serious: Yes (Hospitalization)
  Sender: FDA-Public Use
  Company Number: THYM-11096

PATIENT
  Age: 53 Year
  Sex: Male

DRUGS (7)
  1. THYMOGLOBULIN [Suspect]
     Indication: LIVER TRANSPLANT
     Dosage: 1,5 NG/KG QOD IV
     Route: 042
     Dates: start: 20050613
  2. TIRATEC [Concomitant]
  3. LANTUS [Concomitant]
  4. NOVORAPID [Concomitant]
  5. PROGRAF [Concomitant]
  6. CELLCEPT [Concomitant]
  7. METHYLPREDNISOLONE 16MG TAB [Concomitant]

REACTIONS (1)
  - LIVER FUNCTION TEST ABNORMAL [None]
